FAERS Safety Report 25762378 (Version 1)
Quarter: 2025Q3

REPORT INFORMATION
  Report Type: Spontaneous
  Country: EU (occurrence: EU)
  Receive Date: 20250904
  Receipt Date: 20250904
  Transmission Date: 20251021
  Serious: Yes (Other)
  Sender: SANDOZ
  Company Number: None

PATIENT
  Age: 9 Year
  Sex: Male

DRUGS (8)
  1. THYMOCYTE IMMUNE GLOBULIN NOS [Suspect]
     Active Substance: THYMOCYTE IMMUNE GLOBULIN NOS
     Indication: Bone marrow conditioning regimen
     Dosage: 10 MG/KG (MG/KG), QD (3X10MG/KG BODY WEIGHT)
     Route: 065
  2. CYCLOSPORINE [Suspect]
     Active Substance: CYCLOSPORINE
     Indication: Prophylaxis against graft versus host disease
     Route: 065
  3. FLUDARABINE [Suspect]
     Active Substance: FLUDARABINE PHOSPHATE
     Indication: Bone marrow conditioning regimen
     Dosage: 5X30MG/SQM BODY SURFACE
     Route: 065
  4. METHOTREXATE [Suspect]
     Active Substance: METHOTREXATE
     Indication: Prophylaxis against graft versus host disease
     Dosage: 10 MG/M2 (MG/M2), QD (10 MG/SQM BODY SURFACE ON DAYS 1, 3 AND 6 FROM THE TRANSPLANT)
     Route: 065
  5. TEPADINA [Suspect]
     Active Substance: THIOTEPA
     Indication: Bone marrow conditioning regimen
     Dosage: 10 MG/KG (MG/KG) (10 MG/KG BODY WEIGHT))
     Route: 042
  6. TREOSULFAN [Suspect]
     Active Substance: TREOSULFAN
     Indication: Bone marrow conditioning regimen
     Dosage: 3X14MG/SQM BODY SURFACE
     Route: 065
  7. CIDOFOVIR [Concomitant]
     Active Substance: CIDOFOVIR
     Indication: Product used for unknown indication
     Route: 065
  8. DEFERASIROX [Concomitant]
     Active Substance: DEFERASIROX
     Indication: Product used for unknown indication
     Route: 065

REACTIONS (8)
  - Metastases to lung [Recovered/Resolved]
  - Undifferentiated sarcoma [Recovered/Resolved]
  - Metastases to lung [Recovering/Resolving]
  - Soft tissue sarcoma [Recovered/Resolved]
  - Mucosal inflammation [Unknown]
  - Pneumonia cytomegaloviral [Unknown]
  - Second primary malignancy [Unknown]
  - Pyrexia [Unknown]
